FAERS Safety Report 13667988 (Version 2)
Quarter: 2017Q4

REPORT INFORMATION
  Report Type: Report from Study
  Country: US (occurrence: US)
  Receive Date: 20170620
  Receipt Date: 20171006
  Transmission Date: 20180320
  Serious: No
  Sender: FDA-Public Use
  Company Number: US-ELI_LILLY_AND_COMPANY-US201706006004

PATIENT
  Age: 41 Year
  Sex: Male

DRUGS (2)
  1. IXEKIZUMAB [Suspect]
     Active Substance: IXEKIZUMAB
     Indication: PSORIASIS
     Dosage: 160 MG, OTHER
     Route: 058
     Dates: start: 20170610
  2. IXEKIZUMAB [Suspect]
     Active Substance: IXEKIZUMAB
     Dosage: 80 MG, 2/M
     Route: 058

REACTIONS (2)
  - Eye infection [Recovered/Resolved]
  - Injection site pain [Recovered/Resolved]

NARRATIVE: CASE EVENT DATE: 20170610
